FAERS Safety Report 5920925-5 (Version None)
Quarter: 2008Q4

REPORT INFORMATION
  Report Type: 
  Country: None (occurrence: None)
  Receive Date: 20081015
  Receipt Date: 20081015
  Transmission Date: 20090506
  Serious: Yes (Hospitalization)
  Sender: FDA-Public Use
  Company Number: None

PATIENT
  Age: 64 Year
  Sex: Male
  Weight: 90.22 kg

DRUGS (1)
  1. AZITHROMYCIN [Suspect]
     Indication: LARYNGITIS
     Dosage: UD EVERY DAY PO
     Route: 048
     Dates: start: 20081004, end: 20081006

REACTIONS (3)
  - COUGH [None]
  - RASH [None]
  - THROAT IRRITATION [None]
